FAERS Safety Report 24353302 (Version 3)
Quarter: 2024Q4

REPORT INFORMATION
  Report Type: Report from Study
  Country: US (occurrence: US)
  Receive Date: 20240923
  Receipt Date: 20241124
  Transmission Date: 20250114
  Serious: Yes (Other)
  Sender: PAREXEL
  Company Number: US-Stemline Therapeutics, Inc.-2024ST004688

PATIENT

DRUGS (2)
  1. ORSERDU [Suspect]
     Active Substance: ELACESTRANT
     Indication: Breast cancer female
     Dosage: 345 MG, DAILY
     Route: 048
     Dates: start: 20240709
  2. ORSERDU [Suspect]
     Active Substance: ELACESTRANT
     Dosage: 345 MG, DAILY
     Route: 048

REACTIONS (7)
  - Neuropathy peripheral [Unknown]
  - Red blood cell count decreased [Not Recovered/Not Resolved]
  - Pruritus [Unknown]
  - Solar lentigo [Unknown]
  - Fatigue [Unknown]
  - Metastases to lung [Unknown]
  - Skin laceration [Unknown]
